FAERS Safety Report 7324627-2 (Version None)
Quarter: 2011Q1

REPORT INFORMATION
  Report Type: 
  Country: None (occurrence: None)
  Receive Date: 20110218
  Receipt Date: 20110204
  Transmission Date: 20110831
  Serious: Yes (Death, Hospitalization)
  Sender: FDA-Public Use
  Company Number: 2011BI004469

PATIENT
  Age: 67 Year
  Sex: Female
  Weight: 98.6 kg

DRUGS (8)
  1. INSULIN [Concomitant]
  2. RITUXIMAB [Concomitant]
  3. GM-CSF [Concomitant]
  4. ZEVALIN [Suspect]
     Indication: MULTIPLE MYELOMA
     Dosage: 216 MCI; IV
     Route: 042
     Dates: start: 20101229, end: 20110106
  5. FLUCONAZOLE [Concomitant]
  6. NYSTATIN [Concomitant]
  7. MELPHALAN [Concomitant]
  8. SCHEDULED INHALERS/NEBULIZERS [Concomitant]

REACTIONS (14)
  - ATRIAL FIBRILLATION [None]
  - NAUSEA [None]
  - MULTI-ORGAN FAILURE [None]
  - VOMITING [None]
  - NAIL DISORDER [None]
  - RESPIRATORY DISTRESS [None]
  - PANCYTOPENIA [None]
  - HYPOTENSION [None]
  - FEBRILE NEUTROPENIA [None]
  - CARDIAC FAILURE CONGESTIVE [None]
  - INTESTINAL ISCHAEMIA [None]
  - RASH [None]
  - RENAL FAILURE ACUTE [None]
  - SEPSIS [None]
